FAERS Safety Report 12875803 (Version 1)
Quarter: 2016Q4

REPORT INFORMATION
  Report Type: Spontaneous
  Country: US (occurrence: US)
  Receive Date: 20161024
  Receipt Date: 20161024
  Transmission Date: 20170207
  Serious: No
  Sender: FDA-Public Use
  Company Number: US-JAZZ-2016-US-015254

PATIENT
  Sex: Male

DRUGS (11)
  1. BUPRENORPHINE. [Concomitant]
     Active Substance: BUPRENORPHINE
  2. CENTRUM SILVER [Concomitant]
     Active Substance: MINERALS\VITAMINS
  3. MULTIVITAMINS [Concomitant]
     Active Substance: VITAMINS
  4. ZYRTEC [Concomitant]
     Active Substance: CETIRIZINE HYDROCHLORIDE
  5. XYREM [Suspect]
     Active Substance: SODIUM OXYBATE
     Indication: SOMNOLENCE
     Dosage: 4.5 G, BID
     Route: 048
     Dates: start: 201204
  6. CLARITIN [Concomitant]
     Active Substance: LORATADINE
  7. CLOMIPRAMINE [Concomitant]
     Active Substance: CLOMIPRAMINE
  8. FLONASE [Concomitant]
     Active Substance: FLUTICASONE PROPIONATE
  9. SEROQUEL [Concomitant]
     Active Substance: QUETIAPINE FUMARATE
  10. FLOMAX [Concomitant]
     Active Substance: TAMSULOSIN HYDROCHLORIDE
  11. KLONOPIN [Concomitant]
     Active Substance: CLONAZEPAM

REACTIONS (2)
  - Pre-existing condition improved [Unknown]
  - Therapeutic response unexpected [Unknown]
